FAERS Safety Report 4503687-8 (Version None)
Quarter: 2004Q4

REPORT INFORMATION
  Report Type: 
  Country: None (occurrence: None)
  Receive Date: 20041115
  Receipt Date: 20041109
  Transmission Date: 20050328
  Serious: Yes (Life-Threatening)
  Sender: FDA-Public Use
  Company Number: 2004-122142-NL

PATIENT
  Age: 34 Year
  Sex: Female

DRUGS (6)
  1. VECURONIUM BROMIDE [Suspect]
     Indication: MUSCLE RELAXANT THERAPY
     Dosage: 7 MG ONCE, INTRAVENOUS (NOS)
     Route: 042
     Dates: start: 20041011, end: 20041011
  2. FENTANYL [Concomitant]
  3. DICLOFENAC [Concomitant]
     Indication: PREMEDICATION
  4. PARACETAMOL [Concomitant]
     Indication: PREMEDICATION
  5. MIDAZOLAM [Concomitant]
     Indication: PREMEDICATION
  6. PROPOFOL [Concomitant]
     Indication: ANAESTHESIA

REACTIONS (4)
  - BRONCHOSPASM [None]
  - HYPOTENSION [None]
  - HYPOXIA [None]
  - TACHYCARDIA [None]
